FAERS Safety Report 24616464 (Version 1)
Quarter: 2024Q4

REPORT INFORMATION
  Report Type: Spontaneous
  Country: DE (occurrence: DE)
  Receive Date: 20241114
  Receipt Date: 20241114
  Transmission Date: 20250114
  Serious: Yes (Disabling)
  Sender: ABBVIE
  Company Number: None

PATIENT
  Age: 16 Year
  Sex: Female
  Weight: 64 kg

DRUGS (7)
  1. CITALOPRAM HYDROBROMIDE [Suspect]
     Active Substance: CITALOPRAM HYDROBROMIDE
     Indication: Tension
     Dosage: DAILY DOSE: 0.66 MG, TOTAL: 100.0 MG, FORM: UNKNOWN
     Route: 048
     Dates: start: 20170917, end: 20180118
  2. CITALOPRAM HYDROBROMIDE [Suspect]
     Active Substance: CITALOPRAM HYDROBROMIDE
     Indication: Tension
     Dosage: DAILY DOSE: 10.0 MG, FORM: UNKNOWN
     Route: 048
  3. FLUOXETINE HYDROCHLORIDE [Suspect]
     Active Substance: FLUOXETINE HYDROCHLORIDE
     Indication: Tension
     Dosage: DAILY DOSE: 20.0 MG, TOTAL: 240.0 MG
     Route: 048
     Dates: start: 20170901, end: 20170912
  4. MIRTAZAPINE [Suspect]
     Active Substance: MIRTAZAPINE
     Indication: Tension
     Dosage: DAILY DOSE: 7.5 MG
     Route: 065
  5. MIRTAZAPINE [Suspect]
     Active Substance: MIRTAZAPINE
     Indication: Tension
     Dosage: DAILY DOSE: 15.0 MG, TOTAL: 1320.0 MG
     Route: 048
     Dates: start: 20171023, end: 20180118
  6. PIPAMPERONE [Suspect]
     Active Substance: PIPAMPERONE
     Indication: Tension
     Dosage: DAILY DOSE: 40.0 MG, TOTAL: 320.0 MG
     Route: 048
     Dates: start: 20171016, end: 20171023
  7. PROMETHAZINE HYDROCHLORIDE [Suspect]
     Active Substance: PROMETHAZINE HYDROCHLORIDE
     Indication: Tension
     Dosage: DAILY DOSE: 75.0 MG, TOTAL: 900.0 MG
     Route: 048
     Dates: start: 20171117, end: 20171128

REACTIONS (4)
  - Thyroiditis [Unknown]
  - Product use in unapproved indication [Unknown]
  - Product administered to patient of inappropriate age [Unknown]
  - Inappropriate schedule of product administration [Unknown]

NARRATIVE: CASE EVENT DATE: 20180129
